FAERS Safety Report 6842980-0 (Version None)
Quarter: 2010Q3

REPORT INFORMATION
  Report Type: 
  Country: None (occurrence: None)
  Receive Date: 20100714
  Receipt Date: 20070910
  Transmission Date: 20110219
  Serious: No
  Sender: FDA-Public Use
  Company Number: US-PFIZER INC-2007066752

PATIENT
  Sex: Female
  Weight: 63.6 kg

DRUGS (6)
  1. CHANTIX [Suspect]
     Indication: SMOKING CESSATION THERAPY
     Dates: start: 20070803
  2. CARAFATE [Concomitant]
  3. AXOTAL [Concomitant]
  4. METHADONE HCL [Concomitant]
  5. CALCITONIN [Concomitant]
     Route: 045
  6. PROPRANOLOL [Concomitant]

REACTIONS (2)
  - DIZZINESS [None]
  - VISION BLURRED [None]
